FAERS Safety Report 24213510 (Version 1)
Quarter: 2024Q3

REPORT INFORMATION
  Report Type: Report from Study
  Country: PE (occurrence: PE)
  Receive Date: 20240815
  Receipt Date: 20240815
  Transmission Date: 20241017
  Serious: Yes (Hospitalization, Other)
  Sender: AMGEN
  Company Number: PE-AMGEN-PERSL2024152533

PATIENT
  Age: 52 Year
  Sex: Male

DRUGS (1)
  1. ADALIMUMAB [Suspect]
     Active Substance: ADALIMUMAB
     Indication: Rheumatoid arthritis
     Dosage: 40 MILLIGRAM, EVERY 15 DAYS
     Route: 058
     Dates: start: 20231215

REACTIONS (6)
  - Epistaxis [Unknown]
  - Varices oesophageal [Unknown]
  - Thrombocytopenia [Recovered/Resolved]
  - Benign neoplasm of skin [Not Recovered/Not Resolved]
  - Helicobacter test positive [Unknown]
  - Gastrointestinal infection [Unknown]

NARRATIVE: CASE EVENT DATE: 20240723
